FAERS Safety Report 8433746-9 (Version None)
Quarter: 2012Q2

REPORT INFORMATION
  Report Type: 
  Country: None (occurrence: None)
  Receive Date: 20120613
  Receipt Date: 20120612
  Transmission Date: 20120825
  Serious: No
  Sender: FDA-Public Use
  Company Number: US-B.I. PHARMACEUTICALS,INC./RIDGEFIELD-2011-BP-18243BP

PATIENT
  Sex: Female
  Weight: 90.72 kg

DRUGS (44)
  1. GLUCOPHAGE [Concomitant]
     Indication: TYPE 2 DIABETES MELLITUS
     Dosage: 2000 MG
     Route: 048
     Dates: start: 20100311
  2. LOVAZA [Concomitant]
     Dosage: 4 G
     Route: 048
     Dates: start: 20110630
  3. POTASSIUM [Concomitant]
     Indication: MINERAL SUPPLEMENTATION
     Dosage: 99 MG
     Route: 048
  4. SYNTHROID [Concomitant]
     Indication: SUPPLEMENTATION THERAPY
     Dosage: 112 MCG
     Route: 048
     Dates: start: 20110203
  5. ASPIRIN [Concomitant]
     Indication: PAIN
     Dosage: 325 MG
     Route: 048
     Dates: start: 20110203
  6. ATARAX [Concomitant]
  7. BENADRYL [Concomitant]
  8. HYPER-SOL [Concomitant]
     Route: 055
     Dates: start: 20110526
  9. FLOVENT [Concomitant]
     Route: 055
     Dates: start: 20110526
  10. FLUTICASONE FUROATE [Concomitant]
     Indication: BRONCHITIS
     Route: 055
     Dates: start: 20101101
  11. VITAMIN D [Concomitant]
     Indication: VITAMIN SUPPLEMENTATION
     Dosage: 2000 MG
     Route: 048
  12. NASONEX [Concomitant]
  13. STOOL SOFTENER [Concomitant]
  14. CEFTIN [Concomitant]
  15. HYPER-SOL [Concomitant]
  16. TRADJENTA [Suspect]
     Indication: TYPE 2 DIABETES MELLITUS
     Dosage: 5 MG
     Route: 048
     Dates: start: 20110630, end: 20110714
  17. PRAVACHOL [Concomitant]
     Indication: BLOOD CHOLESTEROL
     Dosage: 20 MG
     Route: 048
     Dates: start: 20110203
  18. ALBUTEROL [Concomitant]
     Indication: BRONCHITIS
     Route: 055
     Dates: start: 20101101
  19. ATROVENT [Concomitant]
     Indication: BRONCHITIS
     Dosage: 17 MCG
     Route: 055
     Dates: start: 20101101
  20. MAGNESIUM [Concomitant]
     Indication: MINERAL SUPPLEMENTATION
     Dosage: 250 MG
     Route: 048
  21. ASCORBIC ACID [Concomitant]
     Indication: VITAMIN SUPPLEMENTATION
     Dosage: 1000 MG
     Route: 048
     Dates: start: 20100624
  22. CEFUROXIME [Concomitant]
  23. CALCIUM+D [Concomitant]
     Route: 048
     Dates: start: 20100624
  24. IRON [Concomitant]
     Dosage: 1300 MG
  25. FLOVENT [Concomitant]
     Indication: BRONCHITIS
     Route: 055
     Dates: start: 20110630
  26. ATROVENT [Concomitant]
     Dosage: 17 MCG
     Route: 055
     Dates: start: 20110526
  27. ALLEGRA [Concomitant]
     Dosage: 180 MG
  28. CEFTIN [Concomitant]
     Route: 055
     Dates: start: 20110526
  29. METOPROLOL TARTRATE [Concomitant]
     Indication: BLOOD PRESSURE
     Dosage: 50 MG
     Route: 048
     Dates: start: 20110203
  30. OMEPRAZOLE [Concomitant]
     Indication: GASTROOESOPHAGEAL REFLUX DISEASE
     Dosage: 40 MG
     Route: 048
     Dates: start: 20110203
  31. LOVAZA [Concomitant]
     Dosage: 2 MG
     Route: 048
  32. ALBUTEROL [Concomitant]
     Route: 055
     Dates: start: 20110505
  33. MULTI-VITAMIN [Concomitant]
     Indication: VITAMIN SUPPLEMENTATION
     Route: 048
  34. CETIRIZINE [Concomitant]
  35. TRILIPIX [Concomitant]
     Dosage: 135 MG
     Route: 048
     Dates: start: 20110203
  36. SOVAGA [Concomitant]
     Dosage: 1 G
  37. GABAPENTIN [Concomitant]
     Dosage: 600 MG
     Dates: start: 20110203
  38. VENTOLIN [Concomitant]
     Dates: start: 20110203
  39. METFORMIN HCL [Concomitant]
  40. MIRALAX [Concomitant]
  41. SENNA-MINT WAF [Concomitant]
  42. IBUPROFEN [Concomitant]
  43. ACTOS [Concomitant]
     Dosage: 30 MG
  44. FLEXAMIN [Concomitant]
     Dosage: 60 MG

REACTIONS (5)
  - RASH PRURITIC [None]
  - SKIN EXFOLIATION [None]
  - ECZEMA [None]
  - BLISTER [None]
  - RASH GENERALISED [None]
